FAERS Safety Report 24164750 (Version 1)
Quarter: 2024Q3

REPORT INFORMATION
  Report Type: Spontaneous
  Country: GI (occurrence: GI)
  Receive Date: 20240801
  Receipt Date: 20240801
  Transmission Date: 20241017
  Serious: Yes (Other)
  Sender: MERCK
  Company Number: GI-009507513-2407GIB015489

PATIENT
  Age: 61 Year
  Sex: Female

DRUGS (1)
  1. PEMBROLIZUMAB [Suspect]
     Active Substance: PEMBROLIZUMAB
     Indication: Non-small cell lung cancer metastatic
     Dosage: UNK
     Dates: start: 202107

REACTIONS (3)
  - Tumour hyperprogression [Unknown]
  - Guillain-Barre syndrome [Unknown]
  - Paraneoplastic syndrome [Unknown]

NARRATIVE: CASE EVENT DATE: 20210101
